FAERS Safety Report 8027807-6 (Version None)
Quarter: 2011Q4

REPORT INFORMATION
  Report Type: 
  Country: None (occurrence: None)
  Receive Date: 20111130
  Receipt Date: 20110727
  Transmission Date: 20120403
  Serious: Yes (Hospitalization, Other)
  Sender: FDA-Public Use
  Company Number: US201005000634

PATIENT
  Age: 71 Year
  Sex: Male

DRUGS (8)
  1. DYNACIRC [Concomitant]
  2. METFORMIN HCL [Concomitant]
  3. PRAVACHOL [Concomitant]
  4. BYETTA [Suspect]
     Indication: TYPE 2 DIABETES MELLITUS
     Dosage: 10 UG, BID, SUBCUTANEOUS
     Route: 058
     Dates: start: 20050801, end: 20071201
  5. AMARYL [Concomitant]
  6. ACTOS [Concomitant]
  7. MULTIVITAMINS (VITAMINS NOS) [Concomitant]
  8. FOLIC ACID [Concomitant]

REACTIONS (4)
  - RENAL FAILURE [None]
  - PANCREATITIS [None]
  - RENAL FAILURE ACUTE [None]
  - RENAL FAILURE CHRONIC [None]
